FAERS Safety Report 25170087 (Version 2)
Quarter: 2025Q2

REPORT INFORMATION
  Report Type: Spontaneous
  Country: SE (occurrence: SE)
  Receive Date: 20250407
  Receipt Date: 20250416
  Transmission Date: 20250717
  Serious: Yes (Death, Congenital Anomaly)
  Sender: JOHNSON AND JOHNSON
  Company Number: SE-SEMPA-2025-002484

PATIENT

DRUGS (1)
  1. STELARA [Suspect]
     Active Substance: USTEKINUMAB
     Indication: Crohn^s disease
     Dosage: EVERY 4 WEEKS
     Route: 064
     Dates: start: 202004

REACTIONS (3)
  - Congenital hydrocephalus [Fatal]
  - Abortion induced [Fatal]
  - Foetal exposure during pregnancy [Fatal]

NARRATIVE: CASE EVENT DATE: 20250101
